FAERS Safety Report 16457993 (Version 1)
Quarter: 2019Q2

REPORT INFORMATION
  Report Type: Spontaneous
  Country: US (occurrence: US)
  Receive Date: 20190620
  Receipt Date: 20190620
  Transmission Date: 20190711
  Serious: No
  Sender: FDA-Public Use
  Company Number: US-PFIZER INC-2019259901

PATIENT
  Age: 81 Year
  Sex: Female
  Weight: 82.73 kg

DRUGS (2)
  1. LYRICA [Suspect]
     Active Substance: PREGABALIN
     Indication: FIBROMYALGIA
     Dosage: 75 MG, DAILY [X 1 WEEK]
     Route: 048
  2. LYRICA [Suspect]
     Active Substance: PREGABALIN
     Dosage: 75 MG, 2X/DAY
     Route: 048

REACTIONS (4)
  - Pain [Unknown]
  - Weight increased [Unknown]
  - Depression [Unknown]
  - Tenderness [Unknown]
